FAERS Safety Report 7821899-2 (Version None)
Quarter: 2011Q4

REPORT INFORMATION
  Report Type: 
  Country: None (occurrence: None)
  Receive Date: 20111018
  Receipt Date: 20110210
  Transmission Date: 20120403
  Serious: No
  Sender: FDA-Public Use
  Company Number: US-ASTRAZENECA-2011SE08201

PATIENT
  Age: 65 Year
  Sex: Female

DRUGS (2)
  1. SYMBICORT [Suspect]
     Dosage: 160 / 4.5 MCG 1 PUFF TWICE A DAY
     Route: 055
     Dates: start: 20110201
  2. SYMBICORT [Suspect]
     Indication: CHRONIC OBSTRUCTIVE PULMONARY DISEASE
     Dosage: 160 / 4.5 MCG 2 PUFFS TWICE A DAY
     Route: 055

REACTIONS (2)
  - FEELING JITTERY [None]
  - NERVOUSNESS [None]
